FAERS Safety Report 4965996-8 (Version None)
Quarter: 2006Q2

REPORT INFORMATION
  Report Type: 
  Country: None (occurrence: None)
  Receive Date: 20060407
  Receipt Date: 20060331
  Transmission Date: 20061013
  Serious: Yes (Death)
  Sender: FDA-Public Use
  Company Number: US-GLAXOSMITHKLINE-A0599922A

PATIENT
  Age: 48 Year
  Sex: Male

DRUGS (6)
  1. ADVAIR DISKUS 100/50 [Suspect]
     Indication: ASTHMA
     Dosage: 1PUFF TWICE PER DAY
     Route: 055
     Dates: start: 20060320, end: 20060329
  2. SINGULAIR [Concomitant]
  3. XOPENEX [Concomitant]
  4. STEROID SHOT [Concomitant]
  5. FLONASE [Concomitant]
  6. DUONEB [Concomitant]

REACTIONS (6)
  - ABASIA [None]
  - ASTHMA [None]
  - DEATH [None]
  - DYSPNOEA [None]
  - PRODUCTIVE COUGH [None]
  - SECRETION DISCHARGE [None]
